FAERS Safety Report 12200787 (Version 1)
Quarter: 2016Q1

REPORT INFORMATION
  Report Type: Report from Study
  Country: CA (occurrence: CA)
  Receive Date: 20160322
  Receipt Date: 20160322
  Transmission Date: 20160526
  Serious: Yes (Hospitalization, Disabling, Other)
  Sender: FDA-Public Use
  Company Number: CA-GILEAD-2015-0177651

PATIENT
  Age: 75 Year
  Sex: Male
  Weight: 56 kg

DRUGS (16)
  1. SANDOZ-BISOPROLOL [Concomitant]
     Route: 065
  2. IDELALISIB [Suspect]
     Active Substance: IDELALISIB
     Dosage: 150 MG, BID
     Route: 048
     Dates: start: 20160229, end: 2016
  3. APO-OXAZEPAM [Concomitant]
     Active Substance: OXAZEPAM
     Route: 065
  4. ASA [Concomitant]
     Active Substance: ASPIRIN
  5. SYMBICORT [Concomitant]
     Active Substance: BUDESONIDE\FORMOTEROL FUMARATE DIHYDRATE
  6. IDELALISIB [Suspect]
     Active Substance: IDELALISIB
     Indication: NON-HODGKIN^S LYMPHOMA UNSPECIFIED HISTOLOGY INDOLENT
     Dosage: 150 MG, BID
     Route: 048
     Dates: start: 20150917, end: 201510
  7. DOCUSATE SODIUM. [Concomitant]
     Active Substance: DOCUSATE SODIUM
  8. APO ROSUVASTATIN [Concomitant]
  9. SALVENT                            /00139501/ [Concomitant]
  10. IDELALISIB [Suspect]
     Active Substance: IDELALISIB
     Dosage: 150 MG, QD
     Route: 048
     Dates: start: 201510, end: 201602
  11. APO-SIMVASTATIN [Concomitant]
     Active Substance: SIMVASTATIN
     Route: 065
  12. ATENOLOL MYLAN [Concomitant]
     Active Substance: ATENOLOL
  13. MULTIVITAMINS [Concomitant]
     Active Substance: VITAMINS
  14. CIPRODEX                           /00697202/ [Concomitant]
  15. IDELALISIB [Suspect]
     Active Substance: IDELALISIB
     Dosage: 150 MG, BID
     Route: 048
     Dates: start: 20160219, end: 20160226
  16. LEVOFLOXACIN SANDOZ [Concomitant]
     Active Substance: LEVOFLOXACIN

REACTIONS (6)
  - Pneumonia [Not Recovered/Not Resolved]
  - Decreased appetite [Recovered/Resolved]
  - Disease progression [Unknown]
  - Chest pain [Recovering/Resolving]
  - Pyrexia [Recovered/Resolved]
  - Drug dose omission [Recovered/Resolved]

NARRATIVE: CASE EVENT DATE: 2015
